FAERS Safety Report 9745842 (Version 2)
Quarter: 2013Q4

REPORT INFORMATION
  Report Type: Spontaneous
  Country: JP (occurrence: JP)
  Receive Date: 20131211
  Receipt Date: 20131211
  Transmission Date: 20140711
  Serious: Yes (Life-Threatening, Hospitalization, Other)
  Sender: FDA-Public Use
  Company Number: JP-OTSUKA-JP-2013-15137

PATIENT
  Age: 76 Year
  Sex: Female

DRUGS (3)
  1. PLETAAL [Suspect]
     Indication: CEREBRAL INFARCTION
     Dosage: 200 MG MILLIGRAM(S), DAILY DOSE
     Route: 048
     Dates: start: 20130730, end: 20130927
  2. PLAVIX [Concomitant]
     Dosage: 75 MG MILLIGRAM(S), DAILY DOSE
     Route: 048
     Dates: start: 2012, end: 20130729
  3. TAIPROTON [Concomitant]
     Dosage: 15 MG MILLIGRAM(S), DAILY DOSE
     Route: 048
     Dates: start: 2012

REACTIONS (4)
  - Gastric mucosal lesion [Unknown]
  - Gastric haemorrhage [Recovering/Resolving]
  - Platelet count decreased [Recovered/Resolved]
  - Anaemia [Unknown]
